FAERS Safety Report 14689755 (Version 1)
Quarter: 2018Q1

REPORT INFORMATION
  Report Type: Spontaneous
  Country: US (occurrence: US)
  Receive Date: 20180327
  Receipt Date: 20180327
  Transmission Date: 20180509
  Serious: Yes (Disabling)
  Sender: FDA-Public Use
  Company Number: None

PATIENT
  Age: 47 Year
  Sex: Female
  Weight: 56.25 kg

DRUGS (11)
  1. PROBIOTIC [Concomitant]
     Active Substance: PROBIOTICS NOS
  2. VITAMIN C [Concomitant]
     Active Substance: ASCORBIC ACID
  3. LYSINE [Concomitant]
     Active Substance: LYSINE
  4. CARNITOL [Concomitant]
  5. SPIRULINA [Concomitant]
     Active Substance: SPIRULINA
  6. CO-Q 10 [Concomitant]
     Active Substance: UBIDECARENONE
  7. METHYL B12 PLUS [Concomitant]
  8. NALTREXONE [Suspect]
     Active Substance: NALTREXONE
     Indication: FIBROMYALGIA
     Dosage: ?          QUANTITY:1 TABLET(S);?
     Route: 048
     Dates: start: 20180210, end: 20180227
  9. VITAMIN B12 [Concomitant]
     Active Substance: CYANOCOBALAMIN
  10. VITAMIN D [Concomitant]
     Active Substance: CHOLECALCIFEROL
  11. ZINC. [Concomitant]
     Active Substance: ZINC

REACTIONS (5)
  - Sleep disorder [None]
  - Abnormal dreams [None]
  - Clumsiness [None]
  - Fibromyalgia [None]
  - Feeling abnormal [None]

NARRATIVE: CASE EVENT DATE: 20180210
